FAERS Safety Report 6389770-3 (Version None)
Quarter: 2009Q4

REPORT INFORMATION
  Report Type: 
  Country: None (occurrence: None)
  Receive Date: 20091006
  Receipt Date: 20090924
  Transmission Date: 20100525
  Serious: Yes (Hospitalization)
  Sender: FDA-Public Use
  Company Number: MY-PFIZER INC-2006134305

PATIENT
  Age: 61 Year

DRUGS (2)
  1. SUNITINIB MALATE [Suspect]
     Indication: METASTATIC RENAL CELL CARCINOMA
     Dosage: 50 MG, 1X/DAY
     Route: 048
     Dates: start: 20060531
  2. PERINDOPRIL [Concomitant]
     Route: 048
     Dates: start: 20030101

REACTIONS (3)
  - DECREASED APPETITE [None]
  - DIARRHOEA [None]
  - HYPERTHYROIDISM [None]
